FAERS Safety Report 11937726 (Version 1)
Quarter: 2016Q1

REPORT INFORMATION
  Report Type: Spontaneous
  Country: US (occurrence: None)
  Receive Date: 20160120
  Receipt Date: 20160120
  Transmission Date: 20160526
  Serious: Yes (Other)
  Sender: FDA-Public Use
  Company Number: None

PATIENT
  Age: 68 Year
  Sex: Male
  Weight: 101.15 kg

DRUGS (1)
  1. ALBUMIN 5% [Suspect]
     Active Substance: ALBUMIN (HUMAN)
     Indication: PLASMAPHERESIS
     Route: 042
     Dates: start: 20160116, end: 20160116

REACTIONS (2)
  - Product quality issue [None]
  - Hypotension [None]

NARRATIVE: CASE EVENT DATE: 20160116
